FAERS Safety Report 5226512-9 (Version None)
Quarter: 2007Q1

REPORT INFORMATION
  Report Type: 
  Country: None (occurrence: None)
  Receive Date: 20070201
  Receipt Date: 20070117
  Transmission Date: 20070707
  Serious: Yes (Other)
  Sender: FDA-Public Use
  Company Number: NL-PFIZER INC-2006148973

PATIENT
  Sex: Female
  Weight: 68 kg

DRUGS (3)
  1. LIPITOR [Suspect]
     Indication: HYPERCHOLESTEROLAEMIA
     Route: 048
     Dates: start: 20060711, end: 20061201
  2. VALSARTAN [Concomitant]
  3. INDAPAMIDE [Concomitant]

REACTIONS (7)
  - DIZZINESS [None]
  - EPISTAXIS [None]
  - FACIAL OPERATION [None]
  - IMPAIRED HEALING [None]
  - INSOMNIA [None]
  - PAIN IN EXTREMITY [None]
  - WOUND HAEMORRHAGE [None]
